FAERS Safety Report 15739733 (Version 1)
Quarter: 2018Q4

REPORT INFORMATION
  Report Type: Spontaneous
  Country: US (occurrence: US)
  Receive Date: 20181204
  Receipt Date: 20181204
  Transmission Date: 20190205
  Serious: Yes (Hospitalization)
  Sender: FDA-Public Use
  Company Number: None

PATIENT
  Sex: Female

DRUGS (4)
  1. ALEVE [Concomitant]
     Active Substance: NAPROXEN SODIUM
  2. LOVENOX [Concomitant]
     Active Substance: ENOXAPARIN SODIUM
  3. CAPECITABINE. [Suspect]
     Active Substance: CAPECITABINE
     Route: 048
     Dates: start: 20180112
  4. OXYCODONE [Concomitant]
     Active Substance: OXYCODONE

REACTIONS (2)
  - Product dose omission [None]
  - Hospitalisation [None]
